FAERS Safety Report 5793016-4 (Version None)
Quarter: 2008Q2

REPORT INFORMATION
  Report Type: 
  Country: None (occurrence: None)
  Receive Date: 20080627
  Receipt Date: 20080617
  Transmission Date: 20081010
  Serious: Yes (Hospitalization)
  Sender: FDA-Public Use
  Company Number: HK-AMGEN-US287692

PATIENT
  Age: 60 Year
  Sex: Male

DRUGS (6)
  1. NEULASTIM [Suspect]
     Indication: CHEMOTHERAPY
     Route: 065
     Dates: start: 20080523, end: 20080606
  2. MABTHERA [Concomitant]
     Dates: start: 20080509
  3. CYCLOPHOSPHAMIDE [Concomitant]
     Dates: start: 20080509
  4. ADRIAMYCIN PFS [Concomitant]
     Dates: start: 20080509
  5. VINCRISTINE [Concomitant]
     Dates: start: 20080509
  6. PREDNISOLONE [Concomitant]
     Dates: start: 20080509

REACTIONS (1)
  - NEUTROPENIA [None]
